FAERS Safety Report 5023122-3 (Version None)
Quarter: 2006Q2

REPORT INFORMATION
  Report Type: 
  Country: None (occurrence: None)
  Receive Date: 20060428
  Receipt Date: 20060202
  Transmission Date: 20061013
  Serious: No
  Sender: FDA-Public Use
  Company Number: 012116

PATIENT
  Age: 38 Year
  Sex: Female

DRUGS (5)
  1. PRIALT [Suspect]
     Indication: PAIN
     Dosage: SEE IMAGE
     Route: 037
     Dates: start: 20050608, end: 20050617
  2. PRIALT [Suspect]
     Indication: PAIN
     Dosage: SEE IMAGE
     Route: 037
     Dates: start: 20050617, end: 20050624
  3. MORPHINE [Concomitant]
  4. DILAUDID [Concomitant]
  5. BUPIVACAINE [Concomitant]

REACTIONS (5)
  - BACK PAIN [None]
  - GASTRITIS [None]
  - MENTAL IMPAIRMENT [None]
  - NAUSEA [None]
  - VOMITING [None]
